FAERS Safety Report 8054962-4 (Version None)
Quarter: 2012Q1

REPORT INFORMATION
  Report Type: 
  Country: None (occurrence: None)
  Receive Date: 20120119
  Receipt Date: 20120117
  Transmission Date: 20120608
  Serious: Yes (Disabling, Other)
  Sender: FDA-Public Use
  Company Number: PT-PFIZER INC-2012012817

PATIENT
  Age: 68 Year
  Sex: Female
  Weight: 100 kg

DRUGS (7)
  1. SIMVASTATIN [Concomitant]
     Indication: HYPERCHOLESTEROLAEMIA
     Route: 048
  2. CELECOXIB [Suspect]
     Indication: ARTHRALGIA
     Route: 048
     Dates: start: 20111222, end: 20111223
  3. GLUCOPHAGE [Concomitant]
     Indication: DIABETES MELLITUS
     Route: 048
  4. VIARTRIL S [Concomitant]
     Indication: ARTHRALGIA
     Route: 048
  5. LEVOTHYROXINE SODIUM [Concomitant]
     Indication: THYROIDITIS
  6. ZOLPIDEM TARTRATE [Concomitant]
     Route: 048
  7. PANTOC [Concomitant]
     Route: 048

REACTIONS (5)
  - NAUSEA [None]
  - URINARY TRACT PAIN [None]
  - VERTIGO [None]
  - HEADACHE [None]
  - BLINDNESS [None]
